FAERS Safety Report 7652163-2 (Version None)
Quarter: 2011Q3

REPORT INFORMATION
  Report Type: 
  Country: None (occurrence: None)
  Receive Date: 20110803
  Receipt Date: 20100811
  Transmission Date: 20111222
  Serious: No
  Sender: FDA-Public Use
  Company Number: US-BAYER-201033012NA

PATIENT
  Age: 27 Year
  Sex: Female

DRUGS (1)
  1. MIRENA [Suspect]
     Indication: CONTRACEPTION
     Dosage: 20 ?G, CONT
     Route: 015
     Dates: end: 20100702

REACTIONS (4)
  - WEIGHT INCREASED [None]
  - AMENORRHOEA [None]
  - THYROID FUNCTION TEST ABNORMAL [None]
  - MULTIPLE ALLERGIES [None]
